FAERS Safety Report 8106846-0 (Version None)
Quarter: 2012Q1

REPORT INFORMATION
  Report Type: 
  Country: None (occurrence: None)
  Receive Date: 20120202
  Receipt Date: 20120124
  Transmission Date: 20120608
  Serious: Yes (Hospitalization)
  Sender: FDA-Public Use
  Company Number: FR-ASTELLAS-2012US001221

PATIENT
  Sex: Female
  Weight: 47 kg

DRUGS (1)
  1. ERLOTINIB HYDROCHLORIDE [Suspect]
     Indication: NON-SMALL CELL LUNG CANCER
     Dosage: UNK
     Route: 048

REACTIONS (8)
  - MUSCULOSKELETAL PAIN [None]
  - ORAL FUNGAL INFECTION [None]
  - DYSPNOEA EXERTIONAL [None]
  - CHEST PAIN [None]
  - DRUG INTOLERANCE [None]
  - COUGH [None]
  - WEIGHT DECREASED [None]
  - GENERAL PHYSICAL HEALTH DETERIORATION [None]
